FAERS Safety Report 23387932 (Version 1)
Quarter: 2024Q1

REPORT INFORMATION
  Report Type: Spontaneous
  Country: US (occurrence: None)
  Receive Date: 20240109
  Receipt Date: 20240109
  Transmission Date: 20240410
  Serious: Yes (Hospitalization)
  Sender: FDA-Public Use
  Company Number: None

PATIENT
  Sex: Female

DRUGS (1)
  1. TEMOZOLOMIDE [Suspect]
     Active Substance: TEMOZOLOMIDE
     Indication: Brain neoplasm malignant
     Dosage: 360MG BY MOUTH??AKE 2 CAPSULES 1 TIME A DAY FOR 5 DAYS OF EACH CYCLE. TAKE WHOLE WITH WATER ON AN EM
     Route: 048
     Dates: start: 202306

REACTIONS (2)
  - Nausea [None]
  - Vomiting [None]
